FAERS Safety Report 8410882-4 (Version None)
Quarter: 2012Q2

REPORT INFORMATION
  Report Type: 
  Country: None (occurrence: None)
  Receive Date: 20120605
  Receipt Date: 20120602
  Transmission Date: 20120825
  Serious: Yes (Other)
  Sender: FDA-Public Use
  Company Number: PHEH2012US011282

PATIENT
  Sex: Female

DRUGS (3)
  1. DIOVAN [Suspect]
     Dosage: 80 MG, UNK
  2. DIOVAN HCT [Suspect]
     Dosage: 1 DF (160/? MG), DAILY
  3. PRILOSEC OTC [Concomitant]
     Dosage: UNK UKN, PRN

REACTIONS (1)
  - BREAST CANCER [None]
